FAERS Safety Report 5735933-7 (Version None)
Quarter: 2008Q2

REPORT INFORMATION
  Report Type: 
  Country: None (occurrence: None)
  Receive Date: 20080509
  Receipt Date: 20080429
  Transmission Date: 20081010
  Serious: Yes (Disabling)
  Sender: FDA-Public Use
  Company Number: APP200800151

PATIENT
  Age: 58 Year
  Sex: Female

DRUGS (4)
  1. SENSORCAINE [Suspect]
     Indication: MUSCULOSKELETAL PAIN
     Dosage: 30 ML, PREOPERATIVELY, INJECTION; 270 ML, CONTINUOUS VIA PAIN PUMP
     Dates: start: 20040322, end: 20040322
  2. SENSORCAINE [Suspect]
     Indication: MUSCULOSKELETAL PAIN
     Dosage: 30 ML, PREOPERATIVELY, INJECTION; 270 ML, CONTINUOUS VIA PAIN PUMP
     Dates: start: 20040322
  3. DON JOY PAIN PUMP [Suspect]
     Indication: MUSCULOSKELETAL PAIN
     Dates: start: 20040322
  4. ANCEF [Concomitant]

REACTIONS (2)
  - CHONDROLYSIS [None]
  - MUSCULOSKELETAL PAIN [None]
